FAERS Safety Report 5103592-2 (Version None)
Quarter: 2006Q3

REPORT INFORMATION
  Report Type: 
  Country: None (occurrence: None)
  Receive Date: 20060911
  Receipt Date: 20060911
  Transmission Date: 20061208
  Serious: No
  Sender: FDA-Public Use
  Company Number: None

PATIENT
  Age: 37 Year
  Sex: Female
  Weight: 91 kg

DRUGS (1)
  1. GAMMAGARD [Suspect]
     Indication: IMMUNODEFICIENCY COMMON VARIABLE
     Dosage: 40 GM    Q 3 WEEKS   IV
     Route: 042
     Dates: start: 20060907

REACTIONS (3)
  - CHILLS [None]
  - INFUSION RELATED REACTION [None]
  - TREMOR [None]
